FAERS Safety Report 4770758-0 (Version None)
Quarter: 2005Q3

REPORT INFORMATION
  Report Type: 
  Country: None (occurrence: None)
  Receive Date: 20050914
  Receipt Date: 20050905
  Transmission Date: 20060218
  Serious: Yes (Hospitalization)
  Sender: FDA-Public Use
  Company Number: 2005113545

PATIENT
  Sex: Male
  Weight: 96 kg

DRUGS (3)
  1. VFEND [Suspect]
     Indication: CHRONIC SINUSITIS
     Dosage: 200 MG
     Route: 048
     Dates: start: 20050615, end: 20050712
  2. MERONEM          (MEROPENEM) [Concomitant]
  3. TOBI [Concomitant]

REACTIONS (5)
  - DEAFNESS [None]
  - DIZZINESS POSTURAL [None]
  - NYSTAGMUS [None]
  - TINNITUS [None]
  - VESTIBULAR DISORDER [None]
